FAERS Safety Report 21728373 (Version 2)
Quarter: 2023Q1

REPORT INFORMATION
  Report Type: Spontaneous
  Country: CA (occurrence: CA)
  Receive Date: 20221214
  Receipt Date: 20230117
  Transmission Date: 20230417
  Serious: Yes (Hospitalization, Other)
  Sender: FDA-Public Use
  Company Number: CA-PFIZER INC-PV202200121484

PATIENT
  Age: 68 Year
  Sex: Male

DRUGS (1)
  1. BRAFTOVI [Suspect]
     Active Substance: ENCORAFENIB
     Dosage: UNK
     Dates: start: 20221010

REACTIONS (2)
  - Pneumonia [Unknown]
  - Rash [Unknown]

NARRATIVE: CASE EVENT DATE: 20220101
